FAERS Safety Report 6420614-7 (Version None)
Quarter: 2009Q4

REPORT INFORMATION
  Report Type: 
  Country: None (occurrence: None)
  Receive Date: 20091027
  Receipt Date: 20091020
  Transmission Date: 20100525
  Serious: Yes (Disabling)
  Sender: FDA-Public Use
  Company Number: 2009SP018393

PATIENT
  Age: 54 Year
  Sex: Male

DRUGS (2)
  1. PEG-INTRON [Suspect]
     Indication: HEPATITIS C
     Dosage: 150 MCG;QW;IM
     Route: 030
     Dates: start: 20090508, end: 20090701
  2. RIBAVARIN [Suspect]
     Indication: HEPATITIS C
     Dosage: 1800 MG;QD
     Dates: start: 20090508, end: 20090701

REACTIONS (12)
  - ANURIA [None]
  - CONSTIPATION [None]
  - DYSURIA [None]
  - FATIGUE [None]
  - HYPOPHAGIA [None]
  - IMPAIRED WORK ABILITY [None]
  - INFLUENZA LIKE ILLNESS [None]
  - INSOMNIA [None]
  - IRRITABILITY [None]
  - PENIS DISORDER [None]
  - SOMNOLENCE [None]
  - WEIGHT DECREASED [None]
